FAERS Safety Report 7908943-9 (Version None)
Quarter: 2011Q4

REPORT INFORMATION
  Report Type: 
  Country: None (occurrence: None)
  Receive Date: 20111111
  Receipt Date: 20111109
  Transmission Date: 20120403
  Serious: Yes (Death, Other)
  Sender: FDA-Public Use
  Company Number: DE-B.I. PHARMACEUTICALS,INC./RIDGEFIELD-2011-DE-06310DE

PATIENT
  Sex: Male

DRUGS (1)
  1. PRADAXA [Suspect]
     Indication: ATRIAL FIBRILLATION
     Dosage: 2 ANZ
     Dates: start: 20111008, end: 20111024

REACTIONS (4)
  - PNEUMONIA [None]
  - SKIN HAEMORRHAGE [None]
  - GASTROINTESTINAL HAEMORRHAGE [None]
  - AZOTAEMIA [None]
